FAERS Safety Report 9961499 (Version 4)
Quarter: 2014Q1

REPORT INFORMATION
  Report Type: Spontaneous
  Country: GB (occurrence: GB)
  Receive Date: 20140305
  Receipt Date: 20140318
  Transmission Date: 20141002
  Serious: Yes (Other)
  Sender: FDA-Public Use
  Company Number: GB-PFIZER INC-2014058643

PATIENT
  Age: 43 Year
  Sex: Female

DRUGS (2)
  1. LYRICA [Suspect]
     Indication: NECK PAIN
     Dosage: 75 MG, 2X/DAY
  2. KEPPRA [Concomitant]
     Indication: EPILEPSY

REACTIONS (16)
  - Convulsion [Not Recovered/Not Resolved]
  - Aphagia [Not Recovered/Not Resolved]
  - Dizziness [Not Recovered/Not Resolved]
  - Nausea [Recovered/Resolved]
  - Tremor [Not Recovered/Not Resolved]
  - Feeling drunk [Not Recovered/Not Resolved]
  - Disorientation [Not Recovered/Not Resolved]
  - Diarrhoea [Not Recovered/Not Resolved]
  - Insomnia [Not Recovered/Not Resolved]
  - Hyperhidrosis [Not Recovered/Not Resolved]
  - Alopecia [Not Recovered/Not Resolved]
  - Weight decreased [Not Recovered/Not Resolved]
  - Dysphagia [Not Recovered/Not Resolved]
  - Activities of daily living impaired [Not Recovered/Not Resolved]
  - Nervousness [Not Recovered/Not Resolved]
  - Feeling abnormal [Unknown]
